FAERS Safety Report 7273474 (Version 6)
Quarter: 2014Q1

REPORT INFORMATION
  Report Type: Spontaneous
  Country: US (occurrence: US)
  Receive Date: 20100208
  Receipt Date: 20140307
  Transmission Date: 20141002
  Serious: Yes (Other)
  Sender: FDA-Public Use
  Company Number: US-ROCHE-662543

PATIENT
  Age: 23 Year
  Sex: Male
  Weight: 102.15 kg

DRUGS (4)
  1. ACCUTANE [Suspect]
     Indication: ACNE
     Route: 065
     Dates: start: 19980323, end: 19980809
  2. RHINOCORT [Concomitant]
     Indication: HYPERSENSITIVITY
  3. CLARITIN [Concomitant]
     Indication: HYPERSENSITIVITY
  4. ZYRTEC [Concomitant]
     Indication: HYPERSENSITIVITY

REACTIONS (7)
  - Proctitis ulcerative [Unknown]
  - Inflammatory bowel disease [Unknown]
  - Suicidal ideation [Unknown]
  - Depression [Unknown]
  - Memory impairment [Unknown]
  - Irritable bowel syndrome [Unknown]
  - Nephrolithiasis [Unknown]
